FAERS Safety Report 4745524-2 (Version None)
Quarter: 2005Q3

REPORT INFORMATION
  Report Type: 
  Country: None (occurrence: None)
  Receive Date: 20050811
  Receipt Date: 20040714
  Transmission Date: 20060218
  Serious: Yes (Hospitalization, Other)
  Sender: FDA-Public Use
  Company Number: US_990319227

PATIENT
  Age: 68 Year
  Sex: Female
  Weight: 57 kg

DRUGS (4)
  1. HUMULIN R [Suspect]
     Indication: DIABETES MELLITUS
     Dates: start: 19990301
  2. HUMULIN L [Suspect]
     Indication: DIABETES MELLITUS
     Dates: start: 19990301
  3. REGULAR INSULIN [Suspect]
     Indication: DIABETES MELLITUS
     Dates: start: 19990601
  4. LENTE ILETIN II (PORK) [Suspect]
     Indication: DIABETES MELLITUS
     Dates: start: 19990601

REACTIONS (6)
  - BLOOD GLUCOSE INCREASED [None]
  - COMA [None]
  - NAUSEA [None]
  - PRURITUS [None]
  - RASH [None]
  - VOMITING [None]
